FAERS Safety Report 23075721 (Version 1)
Quarter: 2023Q4

REPORT INFORMATION
  Report Type: Spontaneous
  Country: US (occurrence: US)
  Receive Date: 20231017
  Receipt Date: 20231017
  Transmission Date: 20240110
  Serious: No
  Sender: FDA-Public Use
  Company Number: US-AMGEN-USASP2023182549

PATIENT
  Age: 67 Year
  Sex: Male
  Weight: 141.13 kg

DRUGS (2)
  1. KYPROLIS [Suspect]
     Active Substance: CARFILZOMIB
     Indication: Plasma cell myeloma
     Dosage: 10 MILLIGRAM (EVERY 28 DAYS)
     Route: 065
  2. KYPROLIS [Suspect]
     Active Substance: CARFILZOMIB
     Dosage: 30 MILLIGRAM (EVERY 28 DAYS)
     Route: 065

REACTIONS (2)
  - Intercepted medication error [Unknown]
  - Off label use [Unknown]

NARRATIVE: CASE EVENT DATE: 20231011
